FAERS Safety Report 13930135 (Version 1)
Quarter: 2017Q3

REPORT INFORMATION
  Report Type: Spontaneous
  Country: US (occurrence: US)
  Receive Date: 20170901
  Receipt Date: 20170901
  Transmission Date: 20171127
  Serious: Yes (Other)
  Sender: FDA-Public Use
  Company Number: US-PFIZER INC-2017376606

PATIENT
  Sex: Female

DRUGS (3)
  1. DICLOFENAC SODIUM. [Suspect]
     Active Substance: DICLOFENAC SODIUM
  2. MOBIC [Suspect]
     Active Substance: MELOXICAM
  3. GABAPENTIN. [Suspect]
     Active Substance: GABAPENTIN
     Dosage: UNK

REACTIONS (8)
  - Feeling abnormal [Unknown]
  - Inflammation [Unknown]
  - Exostosis [Unknown]
  - Musculoskeletal pain [Unknown]
  - Movement disorder [Unknown]
  - Drug ineffective [Unknown]
  - Rotator cuff syndrome [Unknown]
  - Arthritis [Unknown]
